FAERS Safety Report 23144001 (Version 1)
Quarter: 2023Q4

REPORT INFORMATION
  Report Type: Spontaneous
  Country: US (occurrence: US)
  Receive Date: 20231103
  Receipt Date: 20231103
  Transmission Date: 20240110
  Serious: Yes (Other)
  Sender: FDA-Public Use
  Company Number: US-TEVA-2023-US-2940821

PATIENT
  Sex: Male

DRUGS (1)
  1. COPAXONE [Suspect]
     Active Substance: GLATIRAMER ACETATE
     Indication: Product used for unknown indication
     Route: 065

REACTIONS (5)
  - Multiple sclerosis relapse [Unknown]
  - Loss of personal independence in daily activities [Unknown]
  - COVID-19 [Unknown]
  - Diplopia [Unknown]
  - Impaired driving ability [Unknown]
